FAERS Safety Report 20524697 (Version 1)
Quarter: 2022Q1

REPORT INFORMATION
  Report Type: Spontaneous
  Country: US (occurrence: US)
  Receive Date: 20220228
  Receipt Date: 20220228
  Transmission Date: 20220423
  Serious: Yes (Other)
  Sender: FDA-Public Use
  Company Number: US-SA-SAC20220224000413

PATIENT
  Age: 48 Year
  Sex: Female

DRUGS (1)
  1. ZANTAC [Suspect]
     Active Substance: RANITIDINE HYDROCHLORIDE
     Indication: Dyspepsia
     Dosage: UNK, DOSE/UNIT: UNKNOWN AT THIS TIME FREQ: OTHER
     Route: 065
     Dates: start: 199501, end: 202007

REACTIONS (2)
  - Breast cancer female [Unknown]
  - Uterine cancer [Unknown]

NARRATIVE: CASE EVENT DATE: 20120401
